FAERS Safety Report 12052088 (Version 1)
Quarter: 2016Q1

REPORT INFORMATION
  Report Type: Spontaneous
  Country: US (occurrence: US)
  Receive Date: 20160209
  Receipt Date: 20160209
  Transmission Date: 20160526
  Serious: No
  Sender: FDA-Public Use
  Company Number: ALCN2016US001130

PATIENT
  Sex: Female

DRUGS (3)
  1. ALAWAY [Concomitant]
     Active Substance: KETOTIFEN FUMARATE
     Indication: HYPERSENSITIVITY
     Dosage: UNK
     Route: 047
  2. TEARS NATURALE FREE [Suspect]
     Active Substance: DEXTRAN 70\HYPROMELLOSE 2910 (4000 MPA.S)
     Indication: PRODUCT USED FOR UNKNOWN INDICATION
     Dosage: UNK
     Route: 047
  3. GENTEAL GEL [Suspect]
     Active Substance: CARBOXYMETHYLCELLULOSE SODIUM\HYPROMELLOSES
     Indication: DRY EYE
     Dosage: 1 GTT, QHS
     Route: 047
     Dates: start: 201601, end: 20160203

REACTIONS (2)
  - Erythema [Recovering/Resolving]
  - Periorbital oedema [Not Recovered/Not Resolved]

NARRATIVE: CASE EVENT DATE: 20160203
